FAERS Safety Report 11064723 (Version 1)
Quarter: 2015Q2

REPORT INFORMATION
  Report Type: Spontaneous
  Country: IL (occurrence: IL)
  Receive Date: 20150424
  Receipt Date: 20150424
  Transmission Date: 20150821
  Serious: Yes (Hospitalization, Other)
  Sender: FDA-Public Use
  Company Number: PHHY2015IL043745

PATIENT
  Age: 8 Year
  Sex: Male

DRUGS (3)
  1. FOCALIN XR [Suspect]
     Active Substance: DEXMETHYLPHENIDATE HYDROCHLORIDE
     Indication: ATTENTION DEFICIT/HYPERACTIVITY DISORDER
     Dosage: 15 MG, QD
     Route: 065
  2. RITALIN LA [Suspect]
     Active Substance: METHYLPHENIDATE HYDROCHLORIDE
     Indication: ATTENTION DEFICIT/HYPERACTIVITY DISORDER
     Dosage: 30 MG, QD FOUR MONTHS
     Route: 065
     Dates: start: 201410
  3. RITALIN LA [Suspect]
     Active Substance: METHYLPHENIDATE HYDROCHLORIDE
     Dosage: 30 MG, UNK
     Route: 065

REACTIONS (15)
  - Slow response to stimuli [Recovered/Resolved]
  - Logorrhoea [Recovered/Resolved]
  - Tic [Recovered/Resolved]
  - Dry mouth [Recovered/Resolved]
  - Appendicitis [Recovered/Resolved]
  - Dysuria [Recovered/Resolved]
  - Vision blurred [Recovered/Resolved]
  - Distractibility [Recovered/Resolved]
  - Diplopia [Recovered/Resolved]
  - Insomnia [Recovered/Resolved]
  - Restlessness [Recovered/Resolved]
  - Anxiety [Recovered/Resolved]
  - Feeling abnormal [Recovered/Resolved]
  - Dyskinesia [Recovered/Resolved]
  - Headache [Recovered/Resolved]
